FAERS Safety Report 21202645 (Version 1)
Quarter: 2022Q3

REPORT INFORMATION
  Report Type: Spontaneous
  Country: US (occurrence: None)
  Receive Date: 20220811
  Receipt Date: 20220811
  Transmission Date: 20221027
  Serious: Yes (Life-Threatening, Disabling)
  Sender: FDA-Public Use
  Company Number: None

PATIENT
  Age: 59 Year
  Sex: Male
  Weight: 78.75 kg

DRUGS (1)
  1. MAGNESIUM CITRATE [Suspect]
     Active Substance: MAGNESIUM CITRATE
     Indication: Constipation
     Route: 048
     Dates: start: 20220717, end: 20220718

REACTIONS (11)
  - Gastrointestinal pain [None]
  - Insomnia [None]
  - Regurgitation [None]
  - Muscle spasms [None]
  - Gastrointestinal disorder [None]
  - Malaise [None]
  - Near death experience [None]
  - Vomiting [None]
  - Diarrhoea [None]
  - Weight decreased [None]
  - Asthenia [None]

NARRATIVE: CASE EVENT DATE: 20220719
